FAERS Safety Report 12588253 (Version 1)
Quarter: 2016Q3

REPORT INFORMATION
  Report Type: Spontaneous
  Country: US (occurrence: US)
  Receive Date: 20160725
  Receipt Date: 20160725
  Transmission Date: 20161109
  Serious: No
  Sender: FDA-Public Use
  Company Number: US-JNJFOC-20160500941

PATIENT
  Age: 56 Year
  Sex: Female
  Weight: 127.01 kg

DRUGS (6)
  1. ZYRTEC 10MG IR TABLET [Suspect]
     Active Substance: CETIRIZINE HYDROCHLORIDE
     Indication: MULTIPLE ALLERGIES
     Dosage: 1 TABLET, 1 TIME PER DAY, FOR 8 DAYS
     Route: 048
     Dates: start: 201604, end: 2016
  2. HORMONES [Concomitant]
     Active Substance: UNSPECIFIED INGREDIENT
     Indication: HYSTERECTOMY
     Dosage: 1 TIME PER DAY, 5 YEARS
     Route: 065
  3. PROGESTERONE. [Concomitant]
     Active Substance: PROGESTERONE
     Indication: HYSTERECTOMY
     Dosage: 1 TIME PER DAY, 7 YEARS
     Route: 048
  4. ZYRTEC 10MG IR TABLET [Suspect]
     Active Substance: CETIRIZINE HYDROCHLORIDE
     Route: 048
  5. FLUTICASONE [Concomitant]
     Active Substance: FLUTICASONE\FLUTICASONE PROPIONATE
     Indication: MULTIPLE ALLERGIES
     Dosage: 2 TIMES PER DAY, 10 YEARS
     Route: 045
  6. ALL OTHER THERAPEUTIC PRODUCTS [Concomitant]
     Active Substance: UNSPECIFIED INGREDIENT
     Indication: HYPOTHYROIDISM
     Dosage: 4 PER DAY, 7-8 YEARS
     Route: 065

REACTIONS (2)
  - Pain in extremity [Recovered/Resolved]
  - Muscle spasms [Recovered/Resolved]
